FAERS Safety Report 5159696-1 (Version None)
Quarter: 2006Q4

REPORT INFORMATION
  Report Type: 
  Country: None (occurrence: None)
  Receive Date: 20061129
  Receipt Date: 20061120
  Transmission Date: 20070319
  Serious: Yes (Other)
  Sender: FDA-Public Use
  Company Number: DE-JNJFOC-20061104579

PATIENT
  Sex: Male
  Weight: 88.2 kg

DRUGS (3)
  1. RISPERDAL [Suspect]
     Indication: DELUSIONAL DISORDER, PERSECUTORY TYPE
     Route: 048
     Dates: start: 20060816
  2. ZYPREXA [Interacting]
     Indication: DELUSIONAL DISORDER, PERSECUTORY TYPE
     Dosage: 5-5-10-20
     Route: 048
     Dates: start: 20060809, end: 20060817
  3. TAVOR [Concomitant]
     Indication: DELUSIONAL DISORDER, PERSECUTORY TYPE
     Route: 048
     Dates: start: 20060807

REACTIONS (3)
  - DRUG INTERACTION [None]
  - LEUKOPENIA [None]
  - THROMBOCYTOPENIA [None]
